FAERS Safety Report 4732381-3 (Version None)
Quarter: 2005Q3

REPORT INFORMATION
  Report Type: 
  Country: None (occurrence: None)
  Receive Date: 20050801
  Receipt Date: 20050721
  Transmission Date: 20060218
  Serious: Yes (Hospitalization, Other)
  Sender: FDA-Public Use
  Company Number: 2005-07-1659

PATIENT
  Age: 77 Year
  Sex: Female

DRUGS (35)
  1. BETAMETHASONE SODIUM PHOSPHATE [Suspect]
     Dosage: SEE IMAGE
     Route: 047
     Dates: start: 20030301, end: 20030701
  2. BETAMETHASONE SODIUM PHOSPHATE [Suspect]
     Dosage: SEE IMAGE
     Route: 047
     Dates: start: 20031006, end: 20031009
  3. BETAMETHASONE SODIUM PHOSPHATE [Suspect]
     Dosage: SEE IMAGE
     Route: 047
     Dates: start: 20030301, end: 20031211
  4. BETAMETHASONE SODIUM PHOSPHATE [Suspect]
     Dosage: SEE IMAGE
     Route: 047
     Dates: start: 20031001, end: 20031211
  5. BETAMETHASONE SODIUM PHOSPHATE [Suspect]
     Dosage: ORAL
     Route: 048
     Dates: start: 20030601
  6. OXYTETRACYCILNE HYDROCHLORIDE [Suspect]
     Dosage: SEE IMAGE
     Route: 047
     Dates: start: 20030522, end: 20030605
  7. OXYTETRACYCILNE HYDROCHLORIDE [Suspect]
     Dosage: SEE IMAGE
     Route: 047
     Dates: start: 20030522, end: 20030922
  8. OXYTETRACYCILNE HYDROCHLORIDE [Suspect]
     Dosage: SEE IMAGE
     Route: 047
     Dates: start: 20030918, end: 20030922
  9. LEVOFLOXACIN [Suspect]
     Dosage: SEE IMAGE
     Route: 047
     Dates: start: 20030301
  10. LEVOFLOXACIN [Suspect]
     Dosage: SEE IMAGE
     Route: 047
     Dates: start: 20030618
  11. OFLOXACIN [Suspect]
     Dosage: SEE IMAGE
     Route: 047
     Dates: start: 20021220
  12. OFLOXACIN [Suspect]
     Dosage: SEE IMAGE
     Route: 047
     Dates: start: 20030605
  13. CEFDINIR [Suspect]
     Dosage: SEE IMAGE
     Route: 048
     Dates: start: 20030522, end: 20030529
  14. CEFDINIR [Suspect]
     Dosage: SEE IMAGE
     Route: 048
     Dates: start: 20030522
  15. CEFDINIR [Suspect]
     Dosage: SEE IMAGE
     Route: 048
     Dates: start: 20030605
  16. CEFDINIR [Suspect]
     Dosage: SEE IMAGE
     Route: 048
     Dates: start: 20030618
  17. CEFMENOXIME OPHTHALMIC SOLUTION [Suspect]
     Dosage: SEE IMAGE
     Route: 047
     Dates: start: 20030605, end: 20030918
  18. CEFMENOXIME OPHTHALMIC SOLUTION [Suspect]
     Dosage: SEE IMAGE
     Route: 047
     Dates: start: 20030605
  19. CEFMENOXIME OPHTHALMIC SOLUTION [Suspect]
     Dosage: SEE IMAGE
     Route: 047
     Dates: start: 20040122
  20. FLUCYTOSINE ORALS [Suspect]
     Dosage: SEE IMAGE
     Route: 048
     Dates: start: 20030807, end: 20030918
  21. FLUCYTOSINE ORALS [Suspect]
     Dosage: SEE IMAGE
     Route: 048
     Dates: start: 20030807
  22. FLUCYTOSINE ORALS [Suspect]
     Dosage: SEE IMAGE
     Route: 048
     Dates: start: 20031009
  23. MICONAZOLE [Suspect]
     Dosage: SEE IMAGE
     Route: 047
     Dates: start: 20030807, end: 20030911
  24. MICONAZOLE [Suspect]
     Dosage: SEE IMAGE
     Route: 047
     Dates: start: 20031017, end: 20031017
  25. MICONAZOLE [Suspect]
     Dosage: SEE IMAGE
     Route: 047
     Dates: start: 20030807
  26. MICONAZOLE [Suspect]
     Dosage: SEE IMAGE
     Route: 047
     Dates: start: 20031009
  27. MICONAZOLE [Suspect]
     Dosage: SEE IMAGE
     Route: 047
     Dates: start: 20031211
  28. FLUOROMETHOLONE [Suspect]
     Dosage: SEE IMAGE
     Route: 047
     Dates: start: 20030807, end: 20031006
  29. FLUOROMETHOLONE [Suspect]
     Dosage: SEE IMAGE
     Route: 047
     Dates: start: 20030807
  30. FLUOROMETHOLONE [Suspect]
     Dosage: SEE IMAGE
     Route: 047
     Dates: start: 20031009
  31. FLUOROMETHOLONE [Suspect]
     Dosage: SEE IMAGE
     Route: 047
     Dates: start: 20031211
  32. MINOCYCLINE HCL [Suspect]
     Dosage: SEE IMAGE
     Route: 048
     Dates: start: 20030922
  33. MINOCYCLINE HCL [Suspect]
     Dosage: SEE IMAGE
     Route: 048
     Dates: start: 20030922
  34. MINOCYCLINE HCL [Suspect]
     Dosage: SEE IMAGE
     Route: 048
     Dates: start: 20040122
  35. ITRACONAZOLE [Suspect]
     Dosage: ORAL
     Route: 048

REACTIONS (13)
  - ANTI-SS-A ANTIBODY POSITIVE [None]
  - CORNEAL OEDEMA [None]
  - CORNEAL PERFORATION [None]
  - CORNEAL TRANSPLANT [None]
  - DRUG TOXICITY [None]
  - EYE DISCHARGE [None]
  - KERATITIS BACTERIAL [None]
  - KERATITIS FUNGAL [None]
  - NAUSEA [None]
  - POST PROCEDURAL COMPLICATION [None]
  - PUNCTATE KERATITIS [None]
  - RHEUMATOID FACTOR QUANTITATIVE INCREASED [None]
  - ULCERATIVE KERATITIS [None]
